FAERS Safety Report 18222419 (Version 2)
Quarter: 2020Q3

REPORT INFORMATION
  Report Type: Spontaneous
  Country: US (occurrence: US)
  Receive Date: 20200902
  Receipt Date: 20200902
  Transmission Date: 20201103
  Serious: Yes (Hospitalization, Other)
  Sender: FDA-Public Use
  Company Number: US-GILEAD-2020-0492632

PATIENT
  Age: 37 Year
  Sex: Male

DRUGS (3)
  1. METHADONE [Concomitant]
     Active Substance: METHADONE HYDROCHLORIDE
  2. CIPROFLOXACIN. [Concomitant]
     Active Substance: CIPROFLOXACIN
  3. HARVONI [Suspect]
     Active Substance: LEDIPASVIR\SOFOSBUVIR
     Indication: HEPATITIS C
     Dosage: UNK
     Route: 065
     Dates: start: 2015, end: 201702

REACTIONS (23)
  - Coma [Recovered/Resolved]
  - Immunodeficiency [Unknown]
  - Seizure [Unknown]
  - Ill-defined disorder [Unknown]
  - Anxiety [Unknown]
  - Nervous system disorder [Not Recovered/Not Resolved]
  - Infection [Unknown]
  - Gait disturbance [Recovered/Resolved]
  - Insomnia [Unknown]
  - Pulmonary embolism [Unknown]
  - Pain [Unknown]
  - Loss of employment [Unknown]
  - Drug dependence [Unknown]
  - Respiratory arrest [Unknown]
  - Craniocerebral injury [Unknown]
  - Cardiac disorder [Unknown]
  - Dysgraphia [Recovered/Resolved]
  - Metabolic encephalopathy [Unknown]
  - Immune system disorder [Unknown]
  - Overdose [Unknown]
  - Post-traumatic stress disorder [Unknown]
  - Homeless [Not Recovered/Not Resolved]
  - Depression [Unknown]

NARRATIVE: CASE EVENT DATE: 2015
